FAERS Safety Report 20495516 (Version 3)
Quarter: 2022Q2

REPORT INFORMATION
  Report Type: Spontaneous
  Country: US (occurrence: US)
  Receive Date: 20220221
  Receipt Date: 20220420
  Transmission Date: 20220721
  Serious: No
  Sender: FDA-Public Use
  Company Number: US-PFIZER INC-2020108904

PATIENT
  Age: 12 Year
  Sex: Male
  Weight: 36.29 kg

DRUGS (3)
  1. GENOTROPIN [Suspect]
     Active Substance: SOMATROPIN
     Indication: Noonan syndrome
     Dosage: 1.3 MG, DAILY
  2. GENOTROPIN [Suspect]
     Active Substance: SOMATROPIN
     Indication: Failure to thrive
     Dosage: 1.5 MG, ONCE DAILY (EVERY NIGHT)
     Dates: start: 202004
  3. GENOTROPIN [Suspect]
     Active Substance: SOMATROPIN
     Dosage: 1.5 MG, ONCE DAILY (EVERY NIGHT)
     Dates: start: 202004

REACTIONS (4)
  - Off label use [Unknown]
  - Product prescribing error [Unknown]
  - Drug dose omission by device [Unknown]
  - Device mechanical issue [Unknown]
